FAERS Safety Report 18578399 (Version 2)
Quarter: 2020Q4

REPORT INFORMATION
  Report Type: Spontaneous
  Country: GB (occurrence: GB)
  Receive Date: 20201204
  Receipt Date: 20201231
  Transmission Date: 20210114
  Serious: Yes (Hospitalization, Other)
  Sender: FDA-Public Use
  Company Number: GB-ACCORD-209802

PATIENT
  Age: 68 Year
  Sex: Male

DRUGS (13)
  1. APIXABAN [Suspect]
     Active Substance: APIXABAN
     Indication: PULMONARY EMBOLISM
  2. BISOPROLOL [Concomitant]
     Active Substance: BISOPROLOL
     Dosage: IN THE MORNING
  3. CYCLOPHOSPHAMIDE/CYCLOPHOSPHAMIDE MONOHYDRATE [Concomitant]
     Active Substance: CYCLOPHOSPHAMIDE
     Dosage: ONCE IN THE MORNING FOR A FURTHER DAY THEN STOP
  4. ACICLOVIR [Concomitant]
     Active Substance: ACYCLOVIR
     Dosage: IN THE MORNING
  5. FLUCONAZOLE. [Concomitant]
     Active Substance: FLUCONAZOLE
     Dosage: IN THE MORNING
  6. CLOPIDOGREL [Suspect]
     Active Substance: CLOPIDOGREL BISULFATE
     Indication: TRANSIENT ISCHAEMIC ATTACK
     Dosage: IN THE MORNING
  7. ADCAL-D3 [Concomitant]
     Active Substance: CALCIUM CARBONATE\CHOLECALCIFEROL
  8. LANSOPRAZOLE. [Concomitant]
     Active Substance: LANSOPRAZOLE
     Dosage: IN THE MORNING
  9. CLOBETASONE/CLOBETASONE BUTYRATE [Concomitant]
  10. DARBEPOETIN ALFA [Concomitant]
     Active Substance: DARBEPOETIN ALFA
     Dosage: ON TUESDAYS
     Route: 058
  11. NOVOMIX [Concomitant]
     Active Substance: INSULIN ASPART
     Dosage: 32 UNITS IN THE MORNING AND 28 UNITS AT TEATIME
  12. SULPHAMETHOXAZOLE/TRIMETHOPRIM [Concomitant]
     Active Substance: SULFAMETHOXAZOLE\TRIMETHOPRIM
     Dosage: 80MG/400MG, ON MONDAY, WEDNESDAY AND FRIDAY
     Route: 048
  13. PREDNISOLONE. [Suspect]
     Active Substance: PREDNISOLONE
     Indication: VASCULITIS
     Dosage: IN THE MORNING, WITH PLANNED WEANING REGIME

REACTIONS (8)
  - Melaena [Unknown]
  - Pulmonary embolism [Unknown]
  - Circulatory collapse [Unknown]
  - Duodenal ulcer haemorrhage [Unknown]
  - Amaurosis fugax [Unknown]
  - Drug ineffective [Unknown]
  - Transient ischaemic attack [Unknown]
  - Upper gastrointestinal haemorrhage [Unknown]
